FAERS Safety Report 23664158 (Version 1)
Quarter: 2024Q1

REPORT INFORMATION
  Report Type: Spontaneous
  Country: ES (occurrence: ES)
  Receive Date: 20240322
  Receipt Date: 20240322
  Transmission Date: 20240410
  Serious: Yes (Hospitalization, Other)
  Sender: FDA-Public Use
  Company Number: ES-Accord-414699

PATIENT
  Age: 75 Year
  Sex: Male

DRUGS (1)
  1. OLMESARTAN [Suspect]
     Active Substance: OLMESARTAN
     Indication: Hypertension

REACTIONS (4)
  - Colitis microscopic [Recovered/Resolved]
  - Gastrointestinal disorder [Unknown]
  - Renal failure [Unknown]
  - Metabolic acidosis [Unknown]
